FAERS Safety Report 23979318 (Version 1)
Quarter: 2024Q2

REPORT INFORMATION
  Report Type: Spontaneous
  Country: FR (occurrence: FR)
  Receive Date: 20240615
  Receipt Date: 20240615
  Transmission Date: 20240716
  Serious: Yes (Hospitalization, Other)
  Sender: FDA-Public Use
  Company Number: FR-ROCHE-3085821

PATIENT
  Age: 53 Year
  Sex: Female
  Weight: 57.3 kg

DRUGS (26)
  1. DOXORUBICIN [Suspect]
     Active Substance: DOXORUBICIN
     Indication: Diffuse large B-cell lymphoma
     Dosage: 83 MILLIGRAM, EVERY 3 WEEKS (ON 10/JAN/2022, RECEIVED MOST RECENT DOSE 83.0 MG OF DOXORUBICIN PRIOR
     Route: 042
     Dates: start: 20210928
  2. PREDNISONE [Suspect]
     Active Substance: PREDNISONE
     Indication: Diffuse large B-cell lymphoma
     Dosage: 100 MILLIGRAM, ONCE A DAY (ON14/JAN/2022, RECEIVED MOST RECENT DOSE 100 MG OF PREDNISONE PRIOR TO AE
     Route: 048
     Dates: start: 20210927
  3. CYCLOPHOSPHAMIDE [Suspect]
     Active Substance: CYCLOPHOSPHAMIDE
     Indication: Diffuse large B-cell lymphoma
     Dosage: 1246 MILLIGRAM, EVERY 3 WEEKS (ON 10/JAN/2022, MOST RECENT DOSE1246 MG OF CYCLOPHOSPHAMIDE PRIOR TO
     Route: 042
     Dates: start: 20210928
  4. PRIMPERAN [Concomitant]
     Active Substance: METOCLOPRAMIDE HYDROCHLORIDE
     Indication: Prophylaxis of nausea and vomiting
     Dosage: 10 MILLIGRAM
     Route: 065
     Dates: start: 20210928, end: 20220317
  5. ACETAMINOPHEN [Concomitant]
     Active Substance: ACETAMINOPHEN
     Indication: Product used for unknown indication
     Dosage: 1000 MILLIGRAM
     Route: 065
     Dates: start: 20220110, end: 20220110
  6. ACETAMINOPHEN [Concomitant]
     Active Substance: ACETAMINOPHEN
     Dosage: 1000 MILLIGRAM
     Route: 065
     Dates: start: 20211220, end: 20211220
  7. POLATUZUMAB VEDOTIN [Concomitant]
     Active Substance: POLATUZUMAB VEDOTIN
     Indication: Diffuse large B-cell lymphoma
     Dosage: 114 MILLIGRAM, EVERY 3 WEEKS (ON 10/JAN/2022, RECEIVED MOST RECENT DOSE 114 MG OF POLATUZUMAB VEDOTI
     Route: 065
     Dates: start: 20210927
  8. DESLORATADINE [Concomitant]
     Active Substance: DESLORATADINE
     Indication: Product used for unknown indication
     Dosage: 5 MILLIGRAM, ONCE A DAY
     Route: 065
     Dates: start: 20220415
  9. CHOLECALCIFEROL [Concomitant]
     Active Substance: CHOLECALCIFEROL
     Indication: Vitamin D
     Dosage: 50000 INTERNATIONAL UNIT, EVERY MONTH
     Route: 065
     Dates: start: 20220415
  10. FILGRASTIM [Concomitant]
     Active Substance: FILGRASTIM
     Indication: Product used for unknown indication
     Dosage: 34000 INTERNATIONAL UNIT, ONCE A DAY
     Route: 065
     Dates: start: 20211222, end: 20211229
  11. FILGRASTIM [Concomitant]
     Active Substance: FILGRASTIM
     Dosage: 34000 INTERNATIONAL UNIT, ONCE A DAY
     Route: 065
     Dates: start: 20211201, end: 20211208
  12. RITUXIMAB [Concomitant]
     Active Substance: RITUXIMAB
     Indication: Diffuse large B-cell lymphoma
     Dosage: 620 MILLIGRAM, EVERY 3 WEEKS (ON 10/JAN/2022, RECEIVED MOST RECENT DOSE 375 MG OF RITUXIMAB DRUG PRI
     Route: 065
     Dates: start: 20210927
  13. EMEND [Concomitant]
     Active Substance: APREPITANT
     Indication: Prophylaxis of nausea and vomiting
     Dosage: 125 MILLIGRAM
     Route: 065
     Dates: start: 20210928, end: 20220317
  14. EMEND [Concomitant]
     Active Substance: APREPITANT
     Dosage: 80 MILLIGRAM
     Route: 065
     Dates: start: 20210928, end: 20220317
  15. ZOFRAN [Concomitant]
     Active Substance: ONDANSETRON HYDROCHLORIDE
     Indication: Nausea
     Dosage: 8 MILLIGRAM, TWO TIMES A DAY
     Route: 065
     Dates: start: 20210928
  16. AMOXICILLIN\CLAVULANATE POTASSIUM [Concomitant]
     Active Substance: AMOXICILLIN\CLAVULANATE POTASSIUM
     Indication: Bronchitis
     Dosage: 1 GRAM, 3 TIMES A DAY
     Route: 065
     Dates: start: 20220616, end: 20220622
  17. VENETOCLAX [Concomitant]
     Active Substance: VENETOCLAX
     Indication: Diffuse large B-cell lymphoma
     Dosage: 800 MILLIGRAM, ONCE A DAY (ON 14/JAN/2022, RECEIVED MOST RECENT DOSE 800MG OF VENETOCLAX PRIOR TO AE
     Route: 065
     Dates: start: 20210930
  18. FILGRASTIM [Concomitant]
     Active Substance: FILGRASTIM
     Indication: Neutropenia
     Dosage: 48000 INTERNATIONAL UNIT, ONCE A DAY
     Route: 065
     Dates: start: 20220616
  19. VALACYCLOVIR HYDROCHLORIDE [Concomitant]
     Active Substance: VALACYCLOVIR HYDROCHLORIDE
     Indication: Antiviral prophylaxis
     Dosage: 500 MILLIGRAM, TWO TIMES A DAY
     Route: 065
     Dates: start: 20210928
  20. INNOHEP [Concomitant]
     Active Substance: TINZAPARIN SODIUM
     Indication: Product used for unknown indication
     Dosage: 11000 INTERNATIONAL UNIT, ONCE A DAY
     Route: 065
     Dates: start: 20220110
  21. DIPHENHYDRAMINE HYDROCHLORIDE [Concomitant]
     Active Substance: DIPHENHYDRAMINE HYDROCHLORIDE
     Indication: Product used for unknown indication
     Dosage: 5 MILLIGRAM
     Route: 065
     Dates: start: 20211221, end: 20211221
  22. DIPHENHYDRAMINE HYDROCHLORIDE [Concomitant]
     Active Substance: DIPHENHYDRAMINE HYDROCHLORIDE
     Dosage: 5 MILLIGRAM
     Route: 065
     Dates: start: 20211220, end: 20211220
  23. DIPHENHYDRAMINE HYDROCHLORIDE [Concomitant]
     Active Substance: DIPHENHYDRAMINE HYDROCHLORIDE
     Dosage: 5 MILLIGRAM
     Route: 065
     Dates: start: 2022, end: 2022
  24. DIPHENHYDRAMINE HYDROCHLORIDE [Concomitant]
     Active Substance: DIPHENHYDRAMINE HYDROCHLORIDE
     Dosage: 5 MILLIGRAM
     Route: 065
     Dates: start: 20220110, end: 20220110
  25. BACTRIM [Concomitant]
     Active Substance: SULFAMETHOXAZOLE\TRIMETHOPRIM
     Indication: Infection prophylaxis
     Dosage: 1 DOSAGE FORM, 3 TIMES A WEEK
     Route: 065
     Dates: start: 20210928
  26. LEUCOVORIN CALCIUM [Concomitant]
     Active Substance: LEUCOVORIN CALCIUM
     Indication: Product used for unknown indication
     Dosage: 25 MILLIGRAM, EVERY WEEK
     Route: 065
     Dates: start: 20220110

REACTIONS (1)
  - Osteoporotic fracture [Recovered/Resolved]

NARRATIVE: CASE EVENT DATE: 20220117
